FAERS Safety Report 5173174-5 (Version None)
Quarter: 2006Q4

REPORT INFORMATION
  Report Type: 
  Country: None (occurrence: None)
  Receive Date: 20061208
  Receipt Date: 20061208
  Transmission Date: 20070319
  Serious: Yes (Life-Threatening, Other)
  Sender: FDA-Public Use
  Company Number: None

PATIENT
  Sex: Male
  Weight: 96 kg

DRUGS (11)
  1. LENALIDOMIDE [Suspect]
     Indication: MULTIPLE MYELOMA
     Dosage: 25MG   DAILY X 21 DAYS  PO
     Route: 048
     Dates: start: 20060801, end: 20061001
  2. PAMIDRONATE DISODIUM [Concomitant]
  3. ASPIRIN [Concomitant]
  4. PULMICORT [Concomitant]
  5. COUMADIN [Concomitant]
  6. MIDODRINE [Concomitant]
  7. DEXAMETHASONE [Concomitant]
  8. SINGULAIR [Concomitant]
  9. SEREVENT [Concomitant]
  10. SENNAKOT [Concomitant]
  11. OXCODONE [Concomitant]

REACTIONS (3)
  - CRYPTOGENIC ORGANISING PNEUMONIA [None]
  - DYSPNOEA [None]
  - LUNG INFILTRATION [None]
